FAERS Safety Report 22381848 (Version 1)
Quarter: 2023Q2

REPORT INFORMATION
  Report Type: Report from Study
  Country: US (occurrence: None)
  Receive Date: 20230530
  Receipt Date: 20230530
  Transmission Date: 20230722
  Serious: Yes (Hospitalization)
  Sender: FDA-Public Use
  Company Number: US-ROCHE-3356246

PATIENT
  Age: 70 Year
  Sex: Male

DRUGS (2)
  1. OBINUTUZUMAB [Suspect]
     Active Substance: OBINUTUZUMAB
     Indication: Chronic lymphocytic leukaemia
     Dosage: MOST RECENT DOSE OF 1000 MG OBINUTUZUMAB ON 01/MAY/2023, DATE OF LAST PROTOCOL TREATMENT/INTERVENTIO
     Route: 042
     Dates: start: 20220720
  2. ACALABRUTINIB [Suspect]
     Active Substance: ACALABRUTINIB
     Indication: Chronic lymphocytic leukaemia
     Dosage: DATE OF LAST PROTOCOL TREATMENT/INTERVENTION PRIOR TO SAE 22/MAY/2023
     Route: 065
     Dates: start: 20220720

REACTIONS (2)
  - Dehydration [Unknown]
  - Hypotension [Unknown]

NARRATIVE: CASE EVENT DATE: 20230523
